FAERS Safety Report 7517269-7 (Version None)
Quarter: 2011Q2

REPORT INFORMATION
  Report Type: 
  Country: None (occurrence: None)
  Receive Date: 20110601
  Receipt Date: 20110523
  Transmission Date: 20111010
  Serious: Yes (Hospitalization, Other)
  Sender: FDA-Public Use
  Company Number: US-ELI_LILLY_AND_COMPANY-US200910005436

PATIENT
  Sex: Female

DRUGS (21)
  1. HUMALOG [Concomitant]
     Dosage: 24 U, EACH MORNING
  2. FERROUS SULFATE TAB [Concomitant]
     Dosage: 160 MG, QD
     Route: 048
  3. LIPITOR [Concomitant]
     Dosage: 10 MG, QD
     Route: 048
  4. CATAPRES-TTS-1 [Concomitant]
     Dosage: 0.2 MG, QD
     Route: 062
  5. COZAAR [Concomitant]
     Dosage: 100 MG, QD
     Route: 048
  6. CARDURA [Concomitant]
     Dosage: 8 MG, QD
     Route: 048
  7. BYETTA [Suspect]
     Dosage: 10 UG, BID
     Route: 058
     Dates: start: 20071008
  8. FUROSEMIDE [Concomitant]
     Dosage: 40 MG, QD
     Route: 048
  9. TRICOR [Concomitant]
     Dosage: 145 MG, QD
     Route: 048
  10. HUMALOG [Concomitant]
     Dosage: 18 U, EACH EVENING
  11. AMILORIDE HYDROCHLORIDE [Concomitant]
     Dosage: 5 MG, QD
  12. ASPIRIN [Concomitant]
     Dosage: 81 MG, QD
     Route: 048
  13. BYETTA [Suspect]
     Indication: DIABETES MELLITUS
     Dosage: 5 UG, BID
     Route: 058
     Dates: start: 20060607
  14. ZAROXOLYN [Concomitant]
     Dosage: 5 MG, 3/W
     Route: 048
  15. PROZAC [Concomitant]
     Dosage: 20 MG, QD
     Route: 048
  16. NEXIUM [Concomitant]
     Dosage: 40 MG, QD
     Route: 048
  17. CRESTOR [Concomitant]
     Dosage: 20 MG, QD
     Route: 048
  18. BYETTA [Suspect]
     Dosage: 10 UG, BID
     Route: 058
     Dates: end: 20071005
  19. POTASSIUM CHLORIDE [Concomitant]
     Dosage: 20 MEQ, QD
     Route: 048
  20. VYTORIN [Concomitant]
     Dosage: 10 MG, QD
     Route: 048
  21. TEKTURNA [Concomitant]
     Dosage: 150 MEQ, QD
     Route: 048

REACTIONS (4)
  - RENAL FAILURE CHRONIC [None]
  - RENAL FAILURE ACUTE [None]
  - GLYCOSYLATED HAEMOGLOBIN INCREASED [None]
  - OFF LABEL USE [None]
